FAERS Safety Report 11864587 (Version 1)
Quarter: 2015Q4

REPORT INFORMATION
  Report Type: Report from Study
  Country: US (occurrence: US)
  Receive Date: 20151223
  Receipt Date: 20151223
  Transmission Date: 20160305
  Serious: Yes (Other)
  Sender: FDA-Public Use
  Company Number: US-BAXALTA-2015BLT003316

PATIENT
  Age: 59 Year
  Sex: Female
  Weight: 70.7 kg

DRUGS (3)
  1. HYQVIA [Suspect]
     Active Substance: HUMAN IMMUNOGLOBULIN G\HYALURONIDASE RECOMBINANT HUMAN
     Dosage: UNK
     Route: 058
     Dates: start: 20151107
  2. HYQVIA [Suspect]
     Active Substance: HUMAN IMMUNOGLOBULIN G\HYALURONIDASE RECOMBINANT HUMAN
     Indication: PRIMARY IMMUNODEFICIENCY SYNDROME
     Dosage: UNK UNK, EVERY 3 WK
     Route: 058
     Dates: start: 201509
  3. HYQVIA [Suspect]
     Active Substance: HUMAN IMMUNOGLOBULIN G\HYALURONIDASE RECOMBINANT HUMAN
     Dosage: UNK
     Route: 058
     Dates: start: 20151128

REACTIONS (6)
  - Oropharyngeal pain [Recovering/Resolving]
  - Furuncle [Recovering/Resolving]
  - Mass [Recovering/Resolving]
  - Infection [Recovering/Resolving]
  - Cough [Recovering/Resolving]
  - Tongue discolouration [Recovering/Resolving]

NARRATIVE: CASE EVENT DATE: 201511
